FAERS Safety Report 7098587-6 (Version None)
Quarter: 2010Q4

REPORT INFORMATION
  Report Type: 
  Country: None (occurrence: None)
  Receive Date: 20101112
  Receipt Date: 20101108
  Transmission Date: 20110411
  Serious: Yes (Death)
  Sender: FDA-Public Use
  Company Number: PHHY2010NL75010

PATIENT
  Sex: Female

DRUGS (1)
  1. ZOMETA [Suspect]
     Indication: BRONCHIAL CARCINOMA
     Dosage: 4 MG/5 ML
     Route: 042
     Dates: end: 20100930

REACTIONS (1)
  - DEATH [None]
